FAERS Safety Report 12529448 (Version 4)
Quarter: 2016Q3

REPORT INFORMATION
  Report Type: Report from Study
  Country: US (occurrence: US)
  Receive Date: 20160706
  Receipt Date: 20160819
  Transmission Date: 20161109
  Serious: Yes (Other)
  Sender: FDA-Public Use
  Company Number: US-AMGEN-USACT2016086380

PATIENT
  Age: 48 Year
  Sex: Male
  Weight: 82.73 kg

DRUGS (27)
  1. METHOTREXATE. [Concomitant]
     Active Substance: METHOTREXATE
     Dosage: 15 MG, UNK
     Route: 048
     Dates: start: 20131122
  2. DILAUDID [Concomitant]
     Active Substance: HYDROMORPHONE HYDROCHLORIDE
     Dosage: 2 MG, UNK
     Route: 042
     Dates: start: 20160422, end: 20160422
  3. ZEMURON [Concomitant]
     Active Substance: ROCURONIUM BROMIDE
     Dosage: 100 MG, UNK
     Route: 042
     Dates: start: 20160422, end: 20160422
  4. DENOSUMAB [Suspect]
     Active Substance: DENOSUMAB
     Indication: OSTEOPOROSIS
     Dosage: 60 MG, Q6MO
     Route: 058
     Dates: start: 20150430
  5. TORADOL [Concomitant]
     Active Substance: KETOROLAC TROMETHAMINE
     Dosage: 30 MG, UNK
     Route: 042
     Dates: start: 20160422, end: 20160422
  6. PREDNISONE. [Concomitant]
     Active Substance: PREDNISONE
     Dosage: 7.5 MG, UNK
     Route: 048
     Dates: start: 2008
  7. CEPHAZOLIN [Concomitant]
     Active Substance: CEFAZOLIN
     Dosage: 1000 MG, UNK
     Route: 042
     Dates: start: 20160422, end: 20160422
  8. VERSED [Concomitant]
     Active Substance: MIDAZOLAM HYDROCHLORIDE
     Dosage: 2 MG, UNK
     Route: 042
     Dates: start: 20160422, end: 20160422
  9. ACETAMINOPHEN. [Concomitant]
     Active Substance: ACETAMINOPHEN
     Dosage: 325-1000 MG, UNK
     Route: 042
     Dates: start: 20160422, end: 20160422
  10. ROBINUL [Concomitant]
     Active Substance: GLYCOPYRROLATE
     Dosage: 0.8 MG, UNK
     Route: 042
     Dates: start: 20160422, end: 20160422
  11. PLAQUENIL [Concomitant]
     Active Substance: HYDROXYCHLOROQUINE SULFATE
     Dosage: 200 MG, UNK
     Route: 048
     Dates: start: 20131122
  12. APRESOLINE HYDROCHLORIDE [Concomitant]
     Active Substance: HYDRALAZINE HYDROCHLORIDE
     Dosage: 20 MG, UNK
     Route: 042
     Dates: start: 20160422, end: 20160422
  13. PERCOCET [Concomitant]
     Active Substance: ACETAMINOPHEN\OXYCODONE HYDROCHLORIDE
     Dosage: 10 MG, UNK
     Route: 048
     Dates: start: 20160422, end: 20160422
  14. PROSTIGMINE [Concomitant]
     Active Substance: NEOSTIGMINE BROMIDE
     Dosage: 10 MG, UNK
     Route: 042
     Dates: start: 20160422, end: 20160422
  15. OMEPRAZOLE. [Concomitant]
     Active Substance: OMEPRAZOLE
     Dosage: 40 MG, UNK
     Route: 048
     Dates: start: 2005
  16. MARCAINE [Concomitant]
     Active Substance: BUPIVACAINE HYDROCHLORIDE
     Dosage: 0.05 UNK, UNK
     Route: 058
     Dates: start: 20160422, end: 20160422
  17. CENTRUM [Concomitant]
     Active Substance: VITAMINS
     Dosage: 1 UNK, UNK
     Route: 048
     Dates: start: 2005
  18. VITAMIN D [Concomitant]
     Active Substance: CHOLECALCIFEROL
     Dosage: 1000 UNK, UNK
     Route: 048
     Dates: start: 20150430
  19. LACTATED RINGERS [Concomitant]
     Active Substance: CALCIUM CHLORIDE\POTASSIUM CHLORIDE\SODIUM CHLORIDE\SODIUM LACTATE
     Dosage: 150 ML, UNK
     Route: 042
     Dates: start: 20160422, end: 20160422
  20. XYLOCAINE [Concomitant]
     Active Substance: LIDOCAINE HYDROCHLORIDE
     Dosage: 2 UNK, UNK
     Route: 058
     Dates: start: 20160422, end: 20160422
  21. FISH OIL [Concomitant]
     Active Substance: FISH OIL
     Dosage: 1 UNK, UNK
     Route: 048
     Dates: start: 2005
  22. CALCIUM [Concomitant]
     Active Substance: CALCIUM
     Dosage: 1200 MG, UNK
     Route: 048
     Dates: start: 20150430
  23. TRAMADOL. [Concomitant]
     Active Substance: TRAMADOL
     Dosage: 50 MG, UNK
     Route: 048
     Dates: start: 20150715
  24. FENTANYL. [Concomitant]
     Active Substance: FENTANYL
     Dosage: 50 MUG, UNK
     Route: 042
     Dates: start: 20160422, end: 20160422
  25. DIPRIVAN [Concomitant]
     Active Substance: PROPOFOL
     Dosage: 250 MUG, UNK
     Route: 042
     Dates: start: 20160422, end: 20160422
  26. ZOFRAN [Concomitant]
     Active Substance: ONDANSETRON HYDROCHLORIDE
     Dosage: 4 MG, UNK
     Route: 042
     Dates: start: 20160422, end: 20160422
  27. FOLIC ACID. [Concomitant]
     Active Substance: FOLIC ACID
     Dosage: 2 MG, UNK
     Route: 048
     Dates: start: 20141205

REACTIONS (1)
  - Exposed bone in jaw [Unknown]

NARRATIVE: CASE EVENT DATE: 20160627
